FAERS Safety Report 10428865 (Version 1)
Quarter: 2014Q3

REPORT INFORMATION
  Report Type: Spontaneous
  Country: JP (occurrence: JP)
  Receive Date: 20140904
  Receipt Date: 20140904
  Transmission Date: 20150326
  Serious: Yes (Other)
  Sender: FDA-Public Use
  Company Number: JP-CIPLA LTD.-2014JP01228

PATIENT

DRUGS (3)
  1. GEMCITABINE [Suspect]
     Active Substance: GEMCITABINE\GEMCITABINE HYDROCHLORIDE
     Indication: PANCREATIC CARCINOMA
     Dosage: 800 MG/M2 OVER 30 MIN ON DAY 1
     Route: 042
  2. S 1 [Suspect]
     Active Substance: GIMERACIL\OTERACIL POTASSIUM\TEGAFUR
     Indication: PANCREATIC CARCINOMA
     Dosage: 40 MG/M2, TWICE DAILY
     Route: 048
  3. LEUCOVORIN [Suspect]
     Active Substance: LEUCOVORIN
     Indication: PANCREATIC CARCINOMA
     Dosage: 25 MG/M2,TWICE DAILY ON DAYS 1-7, EVERY 2 WEEKS
     Route: 048

REACTIONS (1)
  - Deep vein thrombosis [Unknown]
